FAERS Safety Report 5135133-8 (Version None)
Quarter: 2006Q4

REPORT INFORMATION
  Report Type: 
  Country: None (occurrence: None)
  Receive Date: 20060831
  Receipt Date: 20060511
  Transmission Date: 20070319
  Serious: No
  Sender: FDA-Public Use
  Company Number: 2006-BP-05339BP

PATIENT
  Age: 68 Year
  Sex: Female

DRUGS (4)
  1. SPIRIVA [Suspect]
     Indication: CHRONIC OBSTRUCTIVE PULMONARY DISEASE
     Dosage: 18 MCG (18 MCG,PRN),IH
     Route: 055
     Dates: start: 20050701
  2. HERBAL SUPPLEMENT [Concomitant]
  3. FIBER SUPPLEMENT [Concomitant]
  4. FLUOXETINE [Concomitant]

REACTIONS (8)
  - DRY MOUTH [None]
  - DYSPNOEA [None]
  - GINGIVAL BLISTER [None]
  - GINGIVAL PAIN [None]
  - ORAL MUCOSAL BLISTERING [None]
  - ORAL PAIN [None]
  - PHARYNGEAL ERYTHEMA [None]
  - STOMATITIS [None]
